FAERS Safety Report 6639597-X (Version None)
Quarter: 2010Q1

REPORT INFORMATION
  Report Type: 
  Country: None (occurrence: None)
  Receive Date: 20100318
  Receipt Date: 20100310
  Transmission Date: 20100710
  Serious: Yes (Death)
  Sender: FDA-Public Use
  Company Number: US-SANOFI-AVENTIS-2010SA014287

PATIENT
  Age: 83 Year
  Sex: Male

DRUGS (2)
  1. LANTUS [Suspect]
     Route: 058
     Dates: end: 20100201
  2. SOLOSTAR [Suspect]
     Dates: end: 20100201

REACTIONS (2)
  - CARDIAC DISORDER [None]
  - LUNG NEOPLASM MALIGNANT [None]
